FAERS Safety Report 5269012-2 (Version None)
Quarter: 2007Q1

REPORT INFORMATION
  Report Type: 
  Country: None (occurrence: None)
  Receive Date: 20070319
  Receipt Date: 20070309
  Transmission Date: 20070707
  Serious: Yes (Other)
  Sender: FDA-Public Use
  Company Number: BE-JNJFOC-20070302640

PATIENT
  Age: 12 Year
  Sex: Male

DRUGS (3)
  1. RISPERDAL [Suspect]
     Route: 065
  2. RISPERDAL [Suspect]
     Indication: AUTISM
     Route: 065
  3. RISPERDAL [Suspect]
     Indication: ABNORMAL BEHAVIOUR
     Route: 065

REACTIONS (2)
  - ANXIETY [None]
  - SOCIAL AVOIDANT BEHAVIOUR [None]
